FAERS Safety Report 13731622 (Version 1)
Quarter: 2017Q3

REPORT INFORMATION
  Report Type: Spontaneous
  Country: GB (occurrence: GB)
  Receive Date: 20170707
  Receipt Date: 20170707
  Transmission Date: 20171127
  Serious: Yes (Hospitalization, Other)
  Sender: FDA-Public Use
  Company Number: GB-ALKEM LABORATORIES LIMITED-GB-ALKEM-2017-00406

PATIENT
  Sex: Male

DRUGS (7)
  1. CEPHALEXIN. [Suspect]
     Active Substance: CEPHALEXIN
     Dosage: UNKNOWN
  2. PROTON PUMP INHIBITOR [Concomitant]
     Active Substance: UNSPECIFIED INGREDIENT
     Indication: PRODUCT USED FOR UNKNOWN INDICATION
     Dosage: UNKNOWN
  3. CEPHALEXIN. [Suspect]
     Active Substance: CEPHALEXIN
     Dates: start: 20130118
  4. XARELTO [Suspect]
     Active Substance: RIVAROXABAN
     Indication: PRODUCT USED FOR UNKNOWN INDICATION
     Dosage: 15 MG, BID
     Dates: start: 201702, end: 2017
  5. CEPHALEXIN. [Suspect]
     Active Substance: CEPHALEXIN
     Indication: URINARY TRACT INFECTION
     Dosage: EACH MORNING
     Dates: start: 20170605
  6. XARELTO [Suspect]
     Active Substance: RIVAROXABAN
     Dosage: 20 MG, OD
     Dates: start: 2017
  7. IBUPROFEN. [Suspect]
     Active Substance: IBUPROFEN
     Indication: FALL
     Dosage: 400 MG, TID

REACTIONS (4)
  - Acute kidney injury [Unknown]
  - Melaena [Unknown]
  - Gastrointestinal haemorrhage [Unknown]
  - Drug prescribing error [Unknown]

NARRATIVE: CASE EVENT DATE: 20170509
